FAERS Safety Report 25227683 (Version 1)
Quarter: 2025Q2

REPORT INFORMATION
  Report Type: Spontaneous
  Country: US (occurrence: US)
  Receive Date: 20250422
  Receipt Date: 20250422
  Transmission Date: 20250717
  Serious: Yes (Other)
  Sender: LEGACY PHARMACEUTICAL PACKAGING
  Company Number: US-LEGACY PHARMA INC. SEZC-LGP202504-000122

PATIENT
  Age: 68 Year
  Sex: Female

DRUGS (3)
  1. AZATHIOPRINE [Interacting]
     Active Substance: AZATHIOPRINE
     Indication: Chronic myeloid leukaemia
     Route: 065
  2. BOSUTINIB [Interacting]
     Active Substance: BOSUTINIB
     Indication: Chronic myeloid leukaemia
     Dosage: 100 MILLIGRAM, DAILY
  3. BOSUTINIB [Interacting]
     Active Substance: BOSUTINIB

REACTIONS (4)
  - Autoimmune hepatitis [Recovered/Resolved]
  - Drug interaction [Unknown]
  - Drug-induced liver injury [Recovered/Resolved]
  - Product use in unapproved indication [Unknown]
